FAERS Safety Report 12078588 (Version 3)
Quarter: 2016Q1

REPORT INFORMATION
  Report Type: Spontaneous
  Country: US (occurrence: US)
  Receive Date: 20160216
  Receipt Date: 20160327
  Transmission Date: 20160526
  Serious: Yes (Death, Hospitalization)
  Sender: FDA-Public Use
  Company Number: US-AMGEN-USASP2016016535

PATIENT
  Age: 63 Year
  Sex: Female
  Weight: 78.46 kg

DRUGS (3)
  1. ENBREL [Suspect]
     Active Substance: ETANERCEPT
     Indication: RHEUMATOID ARTHRITIS
  2. ENBREL [Suspect]
     Active Substance: ETANERCEPT
     Indication: PSORIASIS
  3. ENBREL [Suspect]
     Active Substance: ETANERCEPT
     Indication: PSORIATIC ARTHROPATHY
     Dosage: 50 MG, QWK
     Route: 058
     Dates: start: 20120823

REACTIONS (5)
  - Dehydration [Unknown]
  - Drug dose omission [Unknown]
  - Myalgia [Unknown]
  - Balance disorder [Fatal]
  - Sinusitis [Unknown]

NARRATIVE: CASE EVENT DATE: 20160219
